FAERS Safety Report 6764300-2 (Version None)
Quarter: 2010Q2

REPORT INFORMATION
  Report Type: 
  Country: None (occurrence: None)
  Receive Date: 20100610
  Receipt Date: 20100601
  Transmission Date: 20101027
  Serious: Yes (Hospitalization, Other)
  Sender: FDA-Public Use
  Company Number: US-MERCK-1002USA02321

PATIENT
  Age: 49 Year
  Sex: Female

DRUGS (2)
  1. FOSAMAX [Suspect]
     Indication: OSTEOPOROSIS
     Route: 048
     Dates: start: 20001114, end: 20050325
  2. FOSAMAX [Suspect]
     Route: 065
     Dates: start: 20000101

REACTIONS (56)
  - ABDOMINAL DISCOMFORT [None]
  - ADVERSE DRUG REACTION [None]
  - ANXIETY [None]
  - BACK PAIN [None]
  - BLOOD ALBUMIN DECREASED [None]
  - BONE DENSITY DECREASED [None]
  - BONE DISORDER [None]
  - BRONCHITIS CHRONIC [None]
  - CANDIDIASIS [None]
  - CARDIAC FAILURE CONGESTIVE [None]
  - CERVICAL VERTEBRAL FRACTURE [None]
  - CHEILITIS [None]
  - CHRONIC OBSTRUCTIVE PULMONARY DISEASE [None]
  - DENTAL CARIES [None]
  - DEPRESSIVE SYMPTOM [None]
  - DRUG HYPERSENSITIVITY [None]
  - DRUG INEFFECTIVE [None]
  - EDENTULOUS [None]
  - EXOSTOSIS [None]
  - FATIGUE [None]
  - FOOT FRACTURE [None]
  - GALLBLADDER DISORDER [None]
  - GASTROOESOPHAGEAL REFLUX DISEASE [None]
  - GINGIVAL ABSCESS [None]
  - HAEMORRHAGIC ANAEMIA [None]
  - HEADACHE [None]
  - HIP FRACTURE [None]
  - HYPERSENSITIVITY [None]
  - HYPOAESTHESIA ORAL [None]
  - IMPAIRED HEALING [None]
  - INSOMNIA [None]
  - INTERMITTENT CLAUDICATION [None]
  - INTERVERTEBRAL DISC DISORDER [None]
  - INTERVERTEBRAL DISC PROTRUSION [None]
  - LEFT VENTRICULAR HYPERTROPHY [None]
  - LOBAR PNEUMONIA [None]
  - MALNUTRITION [None]
  - MUSCLE SPASMS [None]
  - MUSCLE STRAIN [None]
  - OEDEMA PERIPHERAL [None]
  - ORAL DISORDER [None]
  - OSTEOMYELITIS [None]
  - OSTEONECROSIS OF JAW [None]
  - PAIN [None]
  - PEPTIC ULCER [None]
  - PROTEIN TOTAL DECREASED [None]
  - PULPITIS DENTAL [None]
  - RESTRICTIVE PULMONARY DISEASE [None]
  - SINUSITIS [None]
  - SPINAL COMPRESSION FRACTURE [None]
  - SPONDYLOLISTHESIS [None]
  - SYRINGOMYELIA [None]
  - TOOTH ABSCESS [None]
  - TOOTH DISORDER [None]
  - UPPER GASTROINTESTINAL HAEMORRHAGE [None]
  - WRIST FRACTURE [None]
